FAERS Safety Report 5935373-1 (Version None)
Quarter: 2008Q4

REPORT INFORMATION
  Report Type: 
  Country: None (occurrence: None)
  Receive Date: 20081029
  Receipt Date: 20081029
  Transmission Date: 20090506
  Serious: No
  Sender: FDA-Public Use
  Company Number: None

PATIENT
  Age: 70 Year
  Sex: Male
  Weight: 72.5755 kg

DRUGS (1)
  1. VIADENT ORAL RINCE 7.8 MG /15 ML COLGATE [Suspect]

REACTIONS (1)
  - PRODUCT QUALITY ISSUE [None]
